FAERS Safety Report 9642154 (Version 2)
Quarter: 2013Q4

REPORT INFORMATION
  Report Type: Report from Study
  Country: DE (occurrence: DE)
  Receive Date: 20131023
  Receipt Date: 20131023
  Transmission Date: 20140711
  Serious: Yes (Hospitalization)
  Sender: FDA-Public Use
  Company Number: DE-ROCHE-1279652

PATIENT
  Age: 64 Year
  Sex: Male
  Weight: 72 kg

DRUGS (2)
  1. BEVACIZUMAB [Suspect]
     Indication: RECTAL CANCER METASTATIC
     Route: 042
     Dates: end: 20130723
  2. CAPECITABINE [Concomitant]
     Indication: RECTAL CANCER METASTATIC
     Route: 048
     Dates: start: 20130723

REACTIONS (1)
  - Venous occlusion [Recovered/Resolved]
